FAERS Safety Report 5342587-0 (Version None)
Quarter: 2007Q2

REPORT INFORMATION
  Report Type: 
  Country: None (occurrence: None)
  Receive Date: 20070601
  Receipt Date: 20061204
  Transmission Date: 20071010
  Serious: No
  Sender: FDA-Public Use
  Company Number: A0626638A

PATIENT
  Age: 22 Month
  Sex: Male
  Weight: 12.7 kg

DRUGS (2)
  1. AUGMENTIN ES-600 [Suspect]
     Indication: EAR INFECTION
     Dosage: .75TSP TWICE PER DAY
     Route: 048
     Dates: start: 20061027, end: 20061102
  2. VIGAMOX [Concomitant]
     Indication: CONJUNCTIVITIS
     Route: 031

REACTIONS (7)
  - ABNORMAL BEHAVIOUR [None]
  - ANXIETY [None]
  - AUTISM [None]
  - IRRITABILITY [None]
  - SCREAMING [None]
  - TONGUE BITING [None]
  - TONGUE HAEMORRHAGE [None]
